FAERS Safety Report 4769113-9 (Version None)
Quarter: 2005Q3

REPORT INFORMATION
  Report Type: 
  Country: None (occurrence: None)
  Receive Date: 20050915
  Receipt Date: 20050622
  Transmission Date: 20060218
  Serious: Yes (Disabling)
  Sender: FDA-Public Use
  Company Number: GB-RB-1816-2005

PATIENT
  Sex: Female
  Weight: 54.1 kg

DRUGS (3)
  1. BUPRENORPHINE HCL [Suspect]
     Indication: DRUG ABUSER
     Route: 060
     Dates: start: 20041101
  2. CITALOPRAM [Concomitant]
     Indication: DEPRESSION
     Route: 048
     Dates: start: 20050301
  3. ZOPICLONE [Concomitant]
     Indication: SLEEP DISORDER
     Route: 048
     Dates: start: 20041101

REACTIONS (3)
  - ENAMEL ANOMALY [None]
  - TOOTH INJURY [None]
  - TOOTHACHE [None]
